FAERS Safety Report 9511337 (Version 3)
Quarter: 2014Q1

REPORT INFORMATION
  Report Type: Spontaneous
  Country: US (occurrence: None)
  Receive Date: 20130305
  Receipt Date: 20140306
  Transmission Date: 20141002
  Serious: Yes (Other)
  Sender: FDA-Public Use
  Company Number: 163-21880-12113572

PATIENT
  Age: 70 Year
  Sex: Female

DRUGS (1)
  1. REVLIMID (LENALIDOMIDE) (25 MILLIGRAM, CAPSULES) [Suspect]
     Indication: PLASMA CELL MYELOMA
     Route: 048
     Dates: start: 201004

REACTIONS (7)
  - Drug dose omission [None]
  - Infection [None]
  - Pyrexia [None]
  - Fatigue [None]
  - Diarrhoea [None]
  - Local swelling [None]
  - Urinary tract infection [None]
